FAERS Safety Report 11098230 (Version 1)
Quarter: 2015Q2

REPORT INFORMATION
  Report Type: Report from Study
  Country: US (occurrence: US)
  Receive Date: 20150507
  Receipt Date: 20150507
  Transmission Date: 20150821
  Serious: Yes (Death)
  Sender: FDA-Public Use
  Company Number: US-ABBVIE-15K-163-1385933-00

PATIENT
  Age: 94 Year
  Sex: Female

DRUGS (2)
  1. HUMIRA [Suspect]
     Active Substance: ADALIMUMAB
     Indication: CROHN^S DISEASE
     Route: 058
     Dates: end: 201503
  2. LISINOPRIL. [Concomitant]
     Active Substance: LISINOPRIL
     Indication: HYPERTENSION

REACTIONS (4)
  - Pulmonary oedema [Fatal]
  - Hypertension [Not Recovered/Not Resolved]
  - Cardiac failure congestive [Fatal]
  - Cardiac valve disease [Fatal]

NARRATIVE: CASE EVENT DATE: 201504
